FAERS Safety Report 11472029 (Version 1)
Quarter: 2015Q3

REPORT INFORMATION
  Report Type: Spontaneous
  Country: US (occurrence: US)
  Receive Date: 20150908
  Receipt Date: 20150908
  Transmission Date: 20151125
  Serious: Yes (Death)
  Sender: FDA-Public Use
  Company Number: US-IGSA-GTI003484

PATIENT
  Age: 44 Year
  Sex: Female

DRUGS (1)
  1. GAMUNEX-C [Suspect]
     Active Substance: HUMAN IMMUNOGLOBULIN G
     Indication: ENCEPHALITIS
     Route: 042
     Dates: start: 201507

REACTIONS (3)
  - Drug ineffective [Fatal]
  - Off label use [Fatal]
  - Condition aggravated [Fatal]

NARRATIVE: CASE EVENT DATE: 201507
